FAERS Safety Report 4909871-3 (Version None)
Quarter: 2006Q1

REPORT INFORMATION
  Report Type: 
  Country: None (occurrence: None)
  Receive Date: 20060213
  Receipt Date: 20060202
  Transmission Date: 20060701
  Serious: Yes (Hospitalization)
  Sender: FDA-Public Use
  Company Number: EMADSS2002006196

PATIENT
  Age: 55 Year
  Sex: Female
  Weight: 69 kg

DRUGS (5)
  1. REMICADE [Suspect]
     Route: 041
     Dates: start: 20020426
  2. REMICADE [Suspect]
     Route: 041
     Dates: start: 20020426
  3. REMICADE [Suspect]
     Route: 041
     Dates: start: 20020426
  4. METHOTREXATE [Suspect]
     Route: 030
     Dates: end: 20020805
  5. CORTANCYL [Concomitant]
     Route: 065

REACTIONS (8)
  - DISEASE RECURRENCE [None]
  - FOLLICULITIS [None]
  - HERPES VIRUS INFECTION [None]
  - MUSCULOSKELETAL PAIN [None]
  - OBLITERATIVE BRONCHIOLITIS [None]
  - PNEUMONIA [None]
  - PYELONEPHRITIS [None]
  - RESPIRATORY FAILURE [None]
